FAERS Safety Report 21816074 (Version 1)
Quarter: 2023Q1

REPORT INFORMATION
  Report Type: Spontaneous
  Country: US (occurrence: None)
  Receive Date: 20230103
  Receipt Date: 20230103
  Transmission Date: 20230418
  Serious: Yes (Other)
  Sender: FDA-Public Use
  Company Number: None

PATIENT
  Sex: Male

DRUGS (4)
  1. ENBREL [Suspect]
     Active Substance: ETANERCEPT
     Indication: Ankylosing spondylitis
     Route: 058
     Dates: start: 20200123
  2. CELEBREX [Concomitant]
     Active Substance: CELECOXIB
  3. FLONASE ALGY SPR [Concomitant]
  4. ZERIT [Concomitant]

REACTIONS (2)
  - Surgery [None]
  - Therapy interrupted [None]
